FAERS Safety Report 5124770-2 (Version None)
Quarter: 2006Q4

REPORT INFORMATION
  Report Type: 
  Country: None (occurrence: None)
  Receive Date: 20061011
  Receipt Date: 20060202
  Transmission Date: 20070319
  Serious: Yes (Other)
  Sender: FDA-Public Use
  Company Number: BR-ROCHE-434918

PATIENT
  Sex: Male
  Weight: 3 kg

DRUGS (3)
  1. ROACUTAN [Suspect]
     Indication: ACNE
     Dosage: SECOND COURSE.
     Dates: start: 20050915, end: 20051028
  2. ROACUTAN [Suspect]
     Dosage: FIRST COURSE.
  3. CONTRACEPTIVE [Concomitant]
     Dosage: USED TO TAKE CONTRACEPTIVE MEDICATION DURING ISOTRETINOIN THERAPY.

REACTIONS (3)
  - NO ADVERSE EFFECT [None]
  - NORMAL NEWBORN [None]
  - PREGNANCY [None]
